FAERS Safety Report 4382677-2 (Version None)
Quarter: 2004Q2

REPORT INFORMATION
  Report Type: 
  Country: None (occurrence: None)
  Receive Date: 20040617
  Receipt Date: 20040602
  Transmission Date: 20050107
  Serious: No
  Sender: FDA-Public Use
  Company Number: 200410257BYL

PATIENT
  Sex: Male

DRUGS (4)
  1. ASPIRIN [Suspect]
     Dosage: 100 MG, QD, ORAL
     Route: 048
  2. PANALDINE (TICLOPIDINE HYDROCHLORIDE) [Suspect]
     Dosage: 100 MG, QD, ORAL
     Route: 048
  3. GASLON [Concomitant]
  4. DIOVAN [Concomitant]

REACTIONS (1)
  - RASH [None]
